FAERS Safety Report 8087298-6 (Version None)
Quarter: 2012Q1

REPORT INFORMATION
  Report Type: 
  Country: None (occurrence: None)
  Receive Date: 20120128
  Receipt Date: 20110513
  Transmission Date: 20120608
  Serious: No
  Sender: FDA-Public Use
  Company Number: US-ABBOTT-11P-163-0725949-00

PATIENT
  Age: 54 Year
  Sex: Female

DRUGS (2)
  1. HYDROCODONE BITARTRATE [Concomitant]
     Indication: PAIN
     Dosage: 5/500MG Q 4 HOURS PRN PAIN
  2. HUMIRA [Suspect]
     Indication: RHEUMATOID ARTHRITIS
     Route: 058
     Dates: start: 20110301

REACTIONS (7)
  - LIGAMENT RUPTURE [None]
  - INCORRECT DOSE ADMINISTERED [None]
  - GAIT DISTURBANCE [None]
  - FOOT FRACTURE [None]
  - PAIN [None]
  - DEVICE MALFUNCTION [None]
  - MUSCLE RUPTURE [None]
